FAERS Safety Report 23433363 (Version 1)
Quarter: 2024Q1

REPORT INFORMATION
  Report Type: Spontaneous
  Country: US (occurrence: US)
  Receive Date: 20240123
  Receipt Date: 20240123
  Transmission Date: 20240410
  Serious: Yes (Other)
  Sender: FDA-Public Use
  Company Number: US-FreseniusKabi-FK202401186

PATIENT
  Age: 34 Year
  Sex: Female

DRUGS (2)
  1. PROGESTERONE [Suspect]
     Active Substance: PROGESTERONE
     Indication: Product used for unknown indication
     Dosage: FORM OF ADMINISTRATION: INJECTION
  2. ESTROGENS [Suspect]
     Active Substance: ESTROGENS
     Indication: Product used for unknown indication

REACTIONS (1)
  - Phyllodes tumour [Unknown]
